FAERS Safety Report 5727742-X (Version None)
Quarter: 2008Q2

REPORT INFORMATION
  Report Type: 
  Country: None (occurrence: None)
  Receive Date: 20080505
  Receipt Date: 20080428
  Transmission Date: 20081010
  Serious: Yes (Hospitalization)
  Sender: FDA-Public Use
  Company Number: CA-ASTRAZENECA-2008UW07916

PATIENT
  Age: 69 Year
  Sex: Male
  Weight: 107.2 kg

DRUGS (7)
  1. CRESTOR [Suspect]
     Indication: HYPERLIPIDAEMIA
     Route: 048
     Dates: start: 20080123, end: 20080314
  2. CRESTOR [Suspect]
     Route: 048
     Dates: start: 20071201
  3. ALLOPURINOL [Concomitant]
  4. ATACAND HCT [Concomitant]
     Dosage: 16 MG/12.5 MG
     Route: 048
  5. GLUCOSAMINE [Concomitant]
     Route: 048
  6. SALMON OIL [Concomitant]
     Route: 048
  7. CALCIUM [Concomitant]
     Route: 048

REACTIONS (4)
  - BLOOD CREATINE PHOSPHOKINASE INCREASED [None]
  - COUGH [None]
  - DYSURIA [None]
  - MYALGIA [None]
